FAERS Safety Report 9424696 (Version 2)
Quarter: 2013Q3

REPORT INFORMATION
  Report Type: Spontaneous
  Country: FR (occurrence: FR)
  Receive Date: 20130729
  Receipt Date: 20130805
  Transmission Date: 20140515
  Serious: Yes (Death, Life-Threatening, Other)
  Sender: FDA-Public Use
  Company Number: FR-ELI_LILLY_AND_COMPANY-FR201307005727

PATIENT
  Age: 43 Year
  Sex: Female

DRUGS (9)
  1. ZYPREXA [Suspect]
     Dosage: 10 MG, BID
     Route: 048
     Dates: start: 20121214, end: 20121214
  2. ZYPREXA [Suspect]
     Dosage: 20 MG, QD
     Route: 048
     Dates: start: 20121214, end: 20121214
  3. LOXAPAC /00401801/ [Suspect]
     Indication: AGITATION
     Dosage: 150 GTT, SINGLE
     Route: 048
     Dates: start: 20121214, end: 20121214
  4. IXEL /01054401/ [Suspect]
     Dosage: 50 MG, EACH MORNING
     Dates: start: 20121213, end: 20121214
  5. IXEL /01054401/ [Suspect]
     Dosage: 50 MG, BID
     Route: 048
     Dates: end: 20121212
  6. TEMESTA /00273201/ [Suspect]
     Dosage: 2.5 MG, EACH EVENING
     Route: 048
     Dates: end: 20121214
  7. TEMESTA /00273201/ [Suspect]
     Dosage: 1.25 MG, EACH MORNING
  8. SPASFON LYOC [Concomitant]
     Dosage: 2 DF, PRN
     Dates: end: 20121214
  9. DAFALGAN [Concomitant]
     Dosage: 1 G, PRN
     Dates: start: 20121214, end: 20121214

REACTIONS (12)
  - Pneumonia aspiration [Fatal]
  - Status epilepticus [Fatal]
  - Dysphagia [Fatal]
  - Cardio-respiratory arrest [Recovered/Resolved with Sequelae]
  - Brain oedema [Not Recovered/Not Resolved]
  - Foreign body aspiration [Recovered/Resolved with Sequelae]
  - Acute respiratory distress syndrome [Recovered/Resolved]
  - Sepsis [Recovered/Resolved]
  - Leukocytosis [Unknown]
  - Tonic clonic movements [Unknown]
  - Dyskinesia [Unknown]
  - Hepatocellular injury [Unknown]
